FAERS Safety Report 18632099 (Version 1)
Quarter: 2020Q4

REPORT INFORMATION
  Report Type: Spontaneous
  Country: US (occurrence: US)
  Receive Date: 20201218
  Receipt Date: 20201218
  Transmission Date: 20210114
  Serious: No
  Sender: FDA-Public Use
  Company Number: US-BIOVITRUM-2020US7630

PATIENT
  Sex: Male
  Weight: 8.16 kg

DRUGS (15)
  1. DESITIN 13 % CREAM (G) [Concomitant]
  2. ALBUTEROL SULFATE. [Concomitant]
     Active Substance: ALBUTEROL SULFATE
  3. OXYGEN. [Concomitant]
     Active Substance: OXYGEN
  4. PULMICORT 0.5 MG/2ML AMPUL-NEB [Concomitant]
  5. IPRATROPIUM BROMIDE. [Concomitant]
     Active Substance: IPRATROPIUM BROMIDE
  6. CHILDRENS TYLENOL [Concomitant]
     Active Substance: ACETAMINOPHEN
  7. LORAZEPAM 2 MG/ML VIAL [Concomitant]
  8. SODIUM CHLORIDE 0.9 % IRRIG SOLN [Concomitant]
  9. PEPCID 20 MG [Concomitant]
  10. EPINEPHRINE HCL [Concomitant]
     Active Substance: EPINEPHRINE
  11. AQUAPHOR 41 % OINT. (G) [Concomitant]
  12. SYNAGIS [Suspect]
     Active Substance: PALIVIZUMAB
     Indication: BRONCHOPULMONARY DYSPLASIA
     Route: 030
  13. SYNAGIS [Suspect]
     Active Substance: PALIVIZUMAB
     Indication: PREMATURE BABY
  14. TRIAMCINOLONE ACETONIDE. [Concomitant]
     Active Substance: TRIAMCINOLONE ACETONIDE
  15. SIMETHICONE 40MG/0.6ML DROPS SUSP [Concomitant]

REACTIONS (2)
  - Syringe issue [Unknown]
  - Injection site erythema [Recovered/Resolved]
